FAERS Safety Report 4891292-3 (Version None)
Quarter: 2006Q1

REPORT INFORMATION
  Report Type: 
  Country: None (occurrence: None)
  Receive Date: 20060123
  Receipt Date: 20060110
  Transmission Date: 20060701
  Serious: Yes (Other)
  Sender: FDA-Public Use
  Company Number: 2006-BP-00225RO

PATIENT
  Age: 80 Year
  Sex: Female

DRUGS (1)
  1. PREDNISONE [Suspect]
     Indication: DERMATOMYOSITIS
     Dosage: 10 MG DAILY, PO
     Route: 048

REACTIONS (4)
  - CARPAL TUNNEL SYNDROME [None]
  - DRUG EFFECT DECREASED [None]
  - PULMONARY TUBERCULOSIS [None]
  - TUBERCULOUS TENOSYNOVITIS [None]
